FAERS Safety Report 4314751-0 (Version None)
Quarter: 2004Q1

REPORT INFORMATION
  Report Type: 
  Country: None (occurrence: None)
  Receive Date: 20040308
  Receipt Date: 20040224
  Transmission Date: 20041129
  Serious: Yes (Hospitalization)
  Sender: FDA-Public Use
  Company Number: FR-JNJFOC-20030904088

PATIENT
  Age: 41 Year
  Sex: Male
  Weight: 71 kg

DRUGS (4)
  1. TOPIRAMATE [Suspect]
     Indication: EPILEPSY
     Dosage: 200 MG, IN 1 DAY, ORAL
     Route: 048
     Dates: start: 19990717
  2. DEPAKENE [Concomitant]
  3. LAMICTAL [Concomitant]
  4. CLONAZEPAM [Concomitant]

REACTIONS (11)
  - DEPRESSION [None]
  - DIPLOPIA [None]
  - EXCORIATION [None]
  - GENERAL PHYSICAL HEALTH DETERIORATION [None]
  - HEAD INJURY [None]
  - LOSS OF CONSCIOUSNESS [None]
  - MALAISE [None]
  - MALNUTRITION [None]
  - MUSCULAR WEAKNESS [None]
  - SOCIAL PROBLEM [None]
  - WEIGHT DECREASED [None]
